FAERS Safety Report 4308728-9 (Version None)
Quarter: 2004Q1

REPORT INFORMATION
  Report Type: 
  Country: None (occurrence: None)
  Receive Date: 20040227
  Receipt Date: 20040219
  Transmission Date: 20041129
  Serious: Yes (Death)
  Sender: FDA-Public Use
  Company Number: USA-2003-0011797

PATIENT
  Age: 73 Year
  Sex: Male

DRUGS (2)
  1. SENOKOT [Suspect]
     Indication: CONSTIPATION
  2. PROCRIT (ERYTHROPOIETIN) [Concomitant]

REACTIONS (2)
  - LUNG NEOPLASM MALIGNANT [None]
  - MALIGNANT NEOPLASM PROGRESSION [None]
